FAERS Safety Report 5861896-X (Version None)
Quarter: 2008Q3

REPORT INFORMATION
  Report Type: 
  Country: None (occurrence: None)
  Receive Date: 20080827
  Receipt Date: 20080718
  Transmission Date: 20090109
  Serious: No
  Sender: FDA-Public Use
  Company Number: US-ABBOTT-08P-163-0464177-00

PATIENT
  Sex: Male
  Weight: 102.6 kg

DRUGS (14)
  1. NIASPAN [Suspect]
     Indication: HIGH DENSITY LIPOPROTEIN DECREASED
     Route: 048
     Dates: start: 20080608
  2. NIASPAN [Suspect]
     Indication: BLOOD TRIGLYCERIDES INCREASED
  3. ENALAPRIL MALEATE [Concomitant]
     Indication: HYPERTENSION
     Route: 048
  4. SIMVASTATIN [Concomitant]
     Indication: BLOOD CHOLESTEROL INCREASED
     Route: 048
  5. OMEPRAZOLE [Concomitant]
     Indication: GASTROOESOPHAGEAL REFLUX DISEASE
     Route: 048
  6. GABAPENTIN [Concomitant]
     Indication: NEURALGIA
     Route: 048
  7. WARFARIN SODIUM [Concomitant]
     Indication: CARDIAC PACEMAKER INSERTION
     Route: 048
  8. VITAMIN E [Concomitant]
     Indication: ROUTINE HEALTH MAINTENANCE
     Route: 048
  9. FLAX SEED [Concomitant]
     Indication: ROUTINE HEALTH MAINTENANCE
     Route: 048
  10. FOLIC ACID [Concomitant]
     Indication: ROUTINE HEALTH MAINTENANCE
     Route: 048
  11. EASY IRON [Concomitant]
     Indication: ROUTINE HEALTH MAINTENANCE
     Route: 048
  12. CELERY SEED [Concomitant]
     Indication: ROUTINE HEALTH MAINTENANCE
     Route: 048
  13. CINNAMOMUM VERUM [Concomitant]
     Indication: ROUTINE HEALTH MAINTENANCE
     Route: 048
  14. PENTAZOCINE LACTATE [Concomitant]
     Indication: PAIN
     Route: 048

REACTIONS (2)
  - FEELING HOT [None]
  - PRURITUS [None]
